FAERS Safety Report 5662566-3 (Version None)
Quarter: 2008Q1

REPORT INFORMATION
  Report Type: 
  Country: None (occurrence: None)
  Receive Date: 20080310
  Receipt Date: 20080310
  Transmission Date: 20080703
  Serious: Yes (Other)
  Sender: FDA-Public Use
  Company Number: None

PATIENT
  Age: 59 Year
  Sex: Female
  Weight: 65.7716 kg

DRUGS (1)
  1. CHANTIX [Suspect]
     Indication: SMOKING CESSATION THERAPY
     Dosage: 0.5 MG ONCE PER DAY PO
     Route: 048
     Dates: start: 20080106, end: 20080109

REACTIONS (12)
  - BALANCE DISORDER [None]
  - DEPRESSION [None]
  - DIZZINESS [None]
  - DRUG EFFECT DECREASED [None]
  - DYSPEPSIA [None]
  - ERUCTATION [None]
  - HYPERSOMNIA [None]
  - INSOMNIA [None]
  - MIGRAINE [None]
  - MUSCULAR WEAKNESS [None]
  - SOCIAL AVOIDANT BEHAVIOUR [None]
  - TREMOR [None]
